FAERS Safety Report 4958177-5 (Version None)
Quarter: 2006Q1

REPORT INFORMATION
  Report Type: 
  Country: None (occurrence: None)
  Receive Date: 20060330
  Receipt Date: 20060124
  Transmission Date: 20060701
  Serious: Yes (Hospitalization, Other)
  Sender: FDA-Public Use
  Company Number: PHRM2006FR00628

PATIENT
  Age: 63 Year
  Sex: Female
  Weight: 90 kg

DRUGS (6)
  1. SELOKEN [Concomitant]
     Indication: HYPERTENSION
     Dosage: 200 MG, QD
     Route: 048
  2. NIFEDIPINE [Concomitant]
     Indication: HYPERTENSION
     Dosage: 5 MG, QD
     Route: 048
  3. SOLUPRED [Concomitant]
     Indication: VASCULITIS CEREBRAL
     Dosage: 90 MG/DAY
     Route: 048
     Dates: start: 20051001
  4. CACIT D3 [Concomitant]
     Dosage: 1 DF/DAY
     Route: 048
     Dates: start: 20051001
  5. DIFFU K [Concomitant]
     Dosage: 1200 MG/DAY
     Route: 048
     Dates: start: 20051001
  6. TRILEPTAL [Suspect]
     Indication: EPILEPSY
     Dosage: 300 MG, BID
     Route: 048
     Dates: start: 20051006, end: 20051216

REACTIONS (2)
  - AGRANULOCYTOSIS [None]
  - MONOCYTE COUNT DECREASED [None]
